FAERS Safety Report 25887505 (Version 1)
Quarter: 2025Q4

REPORT INFORMATION
  Report Type: Spontaneous
  Country: EU (occurrence: EU)
  Receive Date: 20251007
  Receipt Date: 20251007
  Transmission Date: 20260118
  Serious: Yes (Hospitalization)
  Sender: SANDOZ
  Company Number: None

PATIENT
  Age: 73 Year
  Sex: Female

DRUGS (16)
  1. ERELZI [Suspect]
     Active Substance: ETANERCEPT-SZZS
     Indication: Rheumatic disorder
     Dosage: 1 DF, QW,1 X PER WEEK (WEDNESDAY), DURATION/START OF THE APPLICATION UNKNOWN, 50 MG SOLUTION FOR INJ
     Route: 058
  2. AMIODARONE [Concomitant]
     Active Substance: AMIODARONE
     Indication: Product used for unknown indication
     Dosage: 1 DF, QD,1-0-0
     Route: 048
     Dates: start: 20250805
  3. SULFAMETHOXAZOLE\TRIMETHOPRIM [Concomitant]
     Active Substance: SULFAMETHOXAZOLE\TRIMETHOPRIM
     Indication: Cystitis
     Dosage: 1 DF,0.5D,960 MG,1-0-1
     Route: 048
     Dates: start: 20250902
  4. ERYTHROPOIETIN [Concomitant]
     Active Substance: ERYTHROPOIETIN
     Indication: Product used for unknown indication
     Dosage: 3 DF, QW,3 X PER WEEK,4.000 IE
     Route: 058
     Dates: start: 20250826
  5. ALBUTEROL\IPRATROPIUM [Concomitant]
     Active Substance: ALBUTEROL\IPRATROPIUM
     Indication: Product used for unknown indication
     Dosage: UNK, Q6H,4X PER DAY
     Route: 055
     Dates: start: 20250805
  6. LEVOTHYROXINE SODIUM [Concomitant]
     Active Substance: LEVOTHYROXINE SODIUM
     Indication: Product used for unknown indication
     Dosage: 1 DF, QD,50 ?G,1-0-0
     Route: 048
     Dates: start: 20250805
  7. BENSERAZIDE\LEVODOPA [Concomitant]
     Active Substance: BENSERAZIDE\LEVODOPA
     Indication: Product used for unknown indication
     Dosage: 1 DF, QD,200/50 MG,1-0-0
     Route: 048
     Dates: start: 20250805
  8. MIRTAZAPINE [Concomitant]
     Active Substance: MIRTAZAPINE
     Indication: Product used for unknown indication
     Dosage: 1 DF, QD,15 MG,0-0-1
     Route: 048
     Dates: start: 20250826
  9. CERTOPARIN SODIUM [Concomitant]
     Active Substance: CERTOPARIN SODIUM
     Indication: Product used for unknown indication
     Dosage: 1 DF,0.5D,1-0-1,8.000 IE
     Route: 058
     Dates: start: 20250826
  10. ESOMEPRAZOLE [Concomitant]
     Active Substance: ESOMEPRAZOLE
     Indication: Product used for unknown indication
     Dosage: 1 DF, QD,40 MG,1-0-0
     Route: 048
     Dates: start: 20250826
  11. METAMIZOLE [Concomitant]
     Active Substance: METAMIZOLE
     Indication: Product used for unknown indication
     Dosage: 30 DROP, Q6H,TROPFEN,30-30-30-30
     Route: 048
     Dates: start: 20250826
  12. PIPAMPERONE HYDROCHLORIDE [Concomitant]
     Active Substance: PIPAMPERONE HYDROCHLORIDE
     Indication: Product used for unknown indication
     Dosage: 10:00 P.M.,40 MG
     Route: 048
     Dates: start: 20250826
  13. PREDNISOLONE [Concomitant]
     Active Substance: PREDNISOLONE
     Indication: Product used for unknown indication
     Dosage: 1 DF, QD,1-0-0,5 MG
     Route: 048
     Dates: start: 20250826
  14. PREGABALIN [Concomitant]
     Active Substance: PREGABALIN
     Indication: Product used for unknown indication
     Dosage: 1 DF,0.5D,1-0-1,75 MG
     Route: 048
     Dates: start: 20250825
  15. RAMIPRIL [Concomitant]
     Active Substance: RAMIPRIL
     Indication: Product used for unknown indication
     Dosage: 1 DF,0.5D,1-0-1 (PREVIOUSLY 1-0-0),2.5 MG
     Route: 048
     Dates: start: 20250902
  16. SERTRALINE HYDROCHLORIDE [Concomitant]
     Active Substance: SERTRALINE HYDROCHLORIDE
     Indication: Product used for unknown indication
     Dosage: 1 DF, QD,1-0-0,50 MG
     Route: 048
     Dates: start: 20250826

REACTIONS (5)
  - Glomerular filtration rate decreased [Recovering/Resolving]
  - Blood potassium increased [Recovering/Resolving]
  - Oxygen saturation decreased [Recovering/Resolving]
  - Nausea [Recovering/Resolving]
  - Vomiting [Recovering/Resolving]

NARRATIVE: CASE EVENT DATE: 20250904
